FAERS Safety Report 9142710 (Version 1)
Quarter: 2013Q1

REPORT INFORMATION
  Report Type: Spontaneous
  Country: US (occurrence: US)
  Receive Date: 20130306
  Receipt Date: 20130306
  Transmission Date: 20140127
  Serious: No
  Sender: FDA-Public Use
  Company Number: US-ENDO PHARMACEUTICALS INC.-OPER20100198

PATIENT
  Age: 49 Year
  Sex: Female

DRUGS (4)
  1. OPANA ER [Suspect]
     Indication: BACK PAIN
     Dosage: 80 MG BID
     Route: 048
     Dates: start: 2008
  2. OPANA ER [Suspect]
     Dosage: 1 TABLET BID
     Route: 048
  3. OPANA [Suspect]
     Indication: BACK PAIN
     Dosage: 1 TABLET QID
     Route: 048
     Dates: start: 2008
  4. OPANA [Suspect]
     Dosage: 1 TABLET TID
     Route: 048

REACTIONS (2)
  - Malabsorption [Unknown]
  - Drug effect incomplete [Not Recovered/Not Resolved]
